FAERS Safety Report 7529339-8 (Version None)
Quarter: 2011Q2

REPORT INFORMATION
  Report Type: 
  Country: None (occurrence: None)
  Receive Date: 20110607
  Receipt Date: 20110531
  Transmission Date: 20111010
  Serious: Yes (Death, Hospitalization)
  Sender: FDA-Public Use
  Company Number: ES-ROCHE-780808

PATIENT
  Age: 2 Year
  Sex: Female

DRUGS (1)
  1. OSELTAMIVIR [Suspect]
     Indication: H1N1 INFLUENZA
     Route: 065
     Dates: start: 20091112

REACTIONS (2)
  - DRUG INEFFECTIVE [None]
  - PATHOGEN RESISTANCE [None]
